FAERS Safety Report 4614436-7 (Version None)
Quarter: 2005Q1

REPORT INFORMATION
  Report Type: 
  Country: None (occurrence: None)
  Receive Date: 20050315
  Receipt Date: 20050308
  Transmission Date: 20050727
  Serious: Yes (Hospitalization)
  Sender: FDA-Public Use
  Company Number: US014849

PATIENT
  Age: 43 Year
  Sex: Female

DRUGS (7)
  1. PROVIGIL [Suspect]
     Indication: FATIGUE
     Dosage: 1 TAB/CAP BID ORAL
     Route: 048
     Dates: start: 20000101, end: 20041001
  2. PROVIGIL [Suspect]
     Indication: MULTIPLE SCLEROSIS
     Dosage: 1 TAB/CAP BID ORAL
     Route: 048
     Dates: start: 20000101, end: 20041001
  3. PROVIGIL [Suspect]
     Indication: FATIGUE
     Dosage: 1 TAB/ CAP QD ORAL
     Route: 048
     Dates: start: 20041001, end: 20041101
  4. PROVIGIL [Suspect]
     Indication: MULTIPLE SCLEROSIS
     Dosage: 1 TAB/ CAP QD ORAL
     Route: 048
     Dates: start: 20041001, end: 20041101
  5. REBIF [Concomitant]
  6. TRACLEER [Concomitant]
  7. WELLBUTRIN [Concomitant]

REACTIONS (7)
  - ABASIA [None]
  - CONDITION AGGRAVATED [None]
  - DRUG INEFFECTIVE [None]
  - FALL [None]
  - INCOHERENT [None]
  - MULTIPLE SCLEROSIS [None]
  - PULMONARY HYPERTENSION [None]
